FAERS Safety Report 7906267-7 (Version None)
Quarter: 2011Q4

REPORT INFORMATION
  Report Type: 
  Country: None (occurrence: None)
  Receive Date: 20111110
  Receipt Date: 20111012
  Transmission Date: 20120403
  Serious: No
  Sender: FDA-Public Use
  Company Number: US-BAYER-2011-108415

PATIENT
  Sex: Female

DRUGS (2)
  1. YAZ [Suspect]
     Indication: MENSTRUAL CYCLE MANAGEMENT
  2. BEYAZ [Suspect]
     Indication: MENSTRUAL CYCLE MANAGEMENT

REACTIONS (3)
  - HYPOMENORRHOEA [None]
  - MENORRHAGIA [None]
  - ANAEMIA [None]
